FAERS Safety Report 16830827 (Version 2)
Quarter: 2019Q4

REPORT INFORMATION
  Report Type: Report from Study
  Country: US (occurrence: US)
  Receive Date: 20190920
  Receipt Date: 20191001
  Transmission Date: 20200122
  Serious: Yes (Other)
  Sender: FDA-Public Use
  Company Number: US-TEVA-2019-US-1109248

PATIENT
  Age: 62 Year
  Sex: Female

DRUGS (3)
  1. AUSTEDO [Suspect]
     Active Substance: DEUTETRABENAZINE
     Dosage: 12 MILLIGRAM DAILY;
     Dates: end: 20190912
  2. AUSTEDO [Suspect]
     Active Substance: DEUTETRABENAZINE
     Indication: TARDIVE DYSKINESIA
     Route: 048
     Dates: start: 20190827
  3. AUSTEDO [Suspect]
     Active Substance: DEUTETRABENAZINE
     Dosage: ONE 6 MG TABLET EVERY OTHER DAY
     Dates: start: 201909

REACTIONS (4)
  - Choking [Recovering/Resolving]
  - Therapy cessation [Unknown]
  - Choking sensation [Recovering/Resolving]
  - Oropharyngeal discomfort [Recovering/Resolving]

NARRATIVE: CASE EVENT DATE: 20190828
